FAERS Safety Report 13548834 (Version 1)
Quarter: 2017Q2

REPORT INFORMATION
  Report Type: Spontaneous
  Country: US (occurrence: US)
  Receive Date: 20170516
  Receipt Date: 20170516
  Transmission Date: 20170830
  Serious: No
  Sender: FDA-Public Use
  Company Number: US-BION-005894

PATIENT
  Sex: Male

DRUGS (1)
  1. IBUPROFEN SOFTGELS [Suspect]
     Active Substance: IBUPROFEN
     Indication: PRODUCT USED FOR UNKNOWN INDICATION
     Dosage: SOFT GELS

REACTIONS (1)
  - Poor quality drug administered [Not Recovered/Not Resolved]
